FAERS Safety Report 9903085 (Version 1)
Quarter: 2014Q1

REPORT INFORMATION
  Report Type: Spontaneous
  Country: GB (occurrence: GB)
  Receive Date: 20140217
  Receipt Date: 20140217
  Transmission Date: 20141002
  Serious: Yes (Other)
  Sender: FDA-Public Use
  Company Number: PHFR2014GB001524

PATIENT
  Age: 71 Year
  Sex: Female

DRUGS (3)
  1. OXCARBAZEPINE [Suspect]
     Dosage: 750 MG, DAILY (300 MG IN THE MORNING, 150 MG MIDDAY AND 300 MG AT NIGHT)
     Route: 048
  2. ZONISAMIDE [Concomitant]
     Dosage: 200 MG, BID
     Route: 048
  3. PREGABALIN [Concomitant]
     Dosage: 250 MG, 150 MG IN THE MORNING AND 100 MG AT NIGHT
     Route: 048

REACTIONS (4)
  - Neuropathy peripheral [Unknown]
  - Paraesthesia [Unknown]
  - Alopecia [Unknown]
  - Headache [Unknown]
